FAERS Safety Report 19472294 (Version 1)
Quarter: 2021Q2

REPORT INFORMATION
  Report Type: Other
  Country: CA (occurrence: CA)
  Receive Date: 20210629
  Receipt Date: 20210629
  Transmission Date: 20210717
  Serious: Yes (Other)
  Sender: FDA-Public Use
  Company Number: CA-ROCHE-2852782

PATIENT
  Sex: Female

DRUGS (24)
  1. RITUXAN [Suspect]
     Active Substance: RITUXIMAB
     Dosage: DAY 1,15
     Route: 042
     Dates: start: 20090730
  2. ACETAMINOPHEN. [Concomitant]
     Active Substance: ACETAMINOPHEN
     Route: 048
     Dates: start: 20090730, end: 20090813
  3. IRON [Concomitant]
     Active Substance: IRON
  4. PANTOLOC [Concomitant]
     Active Substance: PANTOPRAZOLE SODIUM
  5. DIPHENHYDRAMINE HCL [Concomitant]
     Active Substance: DIPHENHYDRAMINE HYDROCHLORIDE
     Route: 048
     Dates: start: 20090730
  6. HYDROCHLOROTHIAZIDE. [Concomitant]
     Active Substance: HYDROCHLOROTHIAZIDE
  7. CLONIDINE. [Concomitant]
     Active Substance: CLONIDINE
  8. FOLIC ACID. [Concomitant]
     Active Substance: FOLIC ACID
  9. RITUXAN [Suspect]
     Active Substance: RITUXIMAB
     Indication: RHEUMATOID ARTHRITIS
     Route: 042
     Dates: start: 20081105, end: 20081118
  10. HYDROXYCHLOROQUINE [Concomitant]
     Active Substance: HYDROXYCHLOROQUINE
  11. BOTOX [Concomitant]
     Active Substance: ONABOTULINUMTOXINA
     Indication: JOINT STIFFNESS
  12. ACETAMINOPHEN. [Concomitant]
     Active Substance: ACETAMINOPHEN
     Route: 048
     Dates: start: 20200306
  13. AVENTYL [Concomitant]
     Active Substance: NORTRIPTYLINE HYDROCHLORIDE
  14. GABAPENTIN. [Concomitant]
     Active Substance: GABAPENTIN
  15. NAPROXEN. [Concomitant]
     Active Substance: NAPROXEN
  16. PREDNISONE. [Suspect]
     Active Substance: PREDNISONE
     Indication: PRODUCT USED FOR UNKNOWN INDICATION
     Route: 065
  17. FENTANYL. [Concomitant]
     Active Substance: FENTANYL
  18. HYDROMORPHONE [Concomitant]
     Active Substance: HYDROMORPHONE
  19. DULOXETINE. [Concomitant]
     Active Substance: DULOXETINE
  20. METHYLPREDNISOLONE. [Concomitant]
     Active Substance: METHYLPREDNISOLONE
     Route: 042
     Dates: start: 20090730
  21. SENNOKOTT [Concomitant]
     Active Substance: SENNOSIDES A AND B
  22. TRANDOLAPRIL. [Concomitant]
     Active Substance: TRANDOLAPRIL
  23. ZOPLICONE [Concomitant]
     Active Substance: ZOPICLONE
  24. CITALOPRAM [Concomitant]
     Active Substance: CITALOPRAM HYDROBROMIDE

REACTIONS (2)
  - Ophthalmic herpes simplex [Unknown]
  - Periorbital cellulitis [Unknown]
